FAERS Safety Report 17434872 (Version 2)
Quarter: 2020Q1

REPORT INFORMATION
  Report Type: Spontaneous
  Country: US (occurrence: US)
  Receive Date: 20200219
  Receipt Date: 20200331
  Transmission Date: 20200409
  Serious: Yes (Other)
  Sender: FDA-Public Use
  Company Number: US-JNJFOC-20200216411

PATIENT
  Age: 70 Year
  Sex: Male

DRUGS (12)
  1. XARELTO [Suspect]
     Active Substance: RIVAROXABAN
     Indication: ATRIAL FIBRILLATION
     Dosage: EVENING
     Route: 048
     Dates: start: 2014
  2. XARELTO [Suspect]
     Active Substance: RIVAROXABAN
     Indication: CEREBROVASCULAR ACCIDENT PROPHYLAXIS
  3. METOPROLOL SUCCINATE. [Concomitant]
     Active Substance: METOPROLOL SUCCINATE
     Dosage: MORNING
  4. MYORISAN [Concomitant]
     Active Substance: ISOTRETINOIN
     Dosage: MONDAY AND THURSDAY
  5. VITAMIN B12 [Concomitant]
     Active Substance: CYANOCOBALAMIN
     Dosage: EVENING
  6. LISINOPRIL. [Concomitant]
     Active Substance: LISINOPRIL
     Dosage: MORNING
  7. MAGNESIUM [Concomitant]
     Active Substance: MAGNESIUM
     Dosage: MORNING
  8. IRON [Concomitant]
     Active Substance: IRON
  9. MUPIROCIN. [Concomitant]
     Active Substance: MUPIROCIN
     Dosage: APPLIED TO BOTH NOSTRILS FIRST 5 DAYS OF THE MONTH MORNING AND EVENING.
     Route: 045
  10. COENZYME Q10 [Concomitant]
     Active Substance: UBIDECARENONE
     Dosage: MORNING
  11. GEMFIBROZIL. [Concomitant]
     Active Substance: GEMFIBROZIL
     Dosage: EVENING
  12. VITAMIN D3 [Concomitant]
     Active Substance: CHOLECALCIFEROL
     Dosage: EVENING

REACTIONS (1)
  - Cerebrovascular accident [Unknown]

NARRATIVE: CASE EVENT DATE: 202001
